FAERS Safety Report 8194391-6 (Version None)
Quarter: 2012Q1

REPORT INFORMATION
  Report Type: 
  Country: None (occurrence: None)
  Receive Date: 20120308
  Receipt Date: 20120229
  Transmission Date: 20120608
  Serious: Yes (Other)
  Sender: FDA-Public Use
  Company Number: FR-CUBIST-2011S1000521

PATIENT
  Age: 76 Year
  Sex: Male

DRUGS (7)
  1. LINEZOLID [Concomitant]
     Indication: PRODUCT USED FOR UNKNOWN INDICATION
     Dosage: DOSE UNIT:U UNKNOWN
     Route: 042
  2. VANCOMYCIN [Concomitant]
     Indication: PRODUCT USED FOR UNKNOWN INDICATION
     Dosage: DOSE UNIT:U UNKNOWN
     Route: 042
  3. CIPROFLOXACIN [Concomitant]
     Indication: PRODUCT USED FOR UNKNOWN INDICATION
     Dosage: DOSE UNIT:U
     Route: 042
  4. CUBICIN [Suspect]
     Indication: ANTIBIOTIC RESISTANT STAPHYLOCOCCUS TEST POSITIVE
     Route: 042
     Dates: start: 20100701, end: 20110630
  5. CUBICIN [Suspect]
     Route: 042
  6. TEICOPLANIN [Concomitant]
     Indication: PRODUCT USED FOR UNKNOWN INDICATION
     Dosage: DOSE UNIT:U UNKNOWN
     Route: 065
  7. CEFTAZIDIME [Concomitant]
     Indication: PRODUCT USED FOR UNKNOWN INDICATION
     Dosage: DOSE UNIT:U UNKNOWN
     Route: 065

REACTIONS (1)
  - BLOOD CREATINE PHOSPHOKINASE INCREASED [None]
